FAERS Safety Report 15270716 (Version 1)
Quarter: 2018Q3

REPORT INFORMATION
  Report Type: Spontaneous
  Country: US (occurrence: US)
  Receive Date: 20180813
  Receipt Date: 20180813
  Transmission Date: 20181010
  Serious: Yes (Other)
  Sender: FDA-Public Use
  Company Number: US-SA-2017SA253388

PATIENT
  Age: 66 Year
  Sex: Female
  Weight: 78.47 kg

DRUGS (4)
  1. TAXOTERE [Suspect]
     Active Substance: DOCETAXEL
     Dosage: UNK UNK,QCY
     Route: 051
     Dates: start: 20101104, end: 20101104
  2. TAXOTERE [Suspect]
     Active Substance: DOCETAXEL
     Dosage: UNK UNK,QCY
     Route: 051
     Dates: start: 20100902, end: 20100902
  3. DOXORUBICIN [Concomitant]
     Active Substance: DOXORUBICIN
  4. CYCLOPHOSPHAMIDE. [Concomitant]
     Active Substance: CYCLOPHOSPHAMIDE

REACTIONS (5)
  - Anxiety [Unknown]
  - Impaired quality of life [Unknown]
  - Alopecia [Recovered/Resolved]
  - Emotional distress [Unknown]
  - Pain [Unknown]
